FAERS Safety Report 7514740-9 (Version None)
Quarter: 2011Q2

REPORT INFORMATION
  Report Type: 
  Country: None (occurrence: None)
  Receive Date: 20110601
  Receipt Date: 20110520
  Transmission Date: 20111010
  Serious: Yes (Hospitalization, Other)
  Sender: FDA-Public Use
  Company Number: US-BAYER-201021474NA

PATIENT
  Age: 45 Year
  Sex: Female
  Weight: 62.132 kg

DRUGS (3)
  1. YASMIN [Suspect]
     Indication: PRODUCT USED FOR UNKNOWN INDICATION
     Dosage: UNK UNK, QD
     Route: 048
     Dates: start: 20021004, end: 20030109
  2. NSAID'S [Concomitant]
  3. BLOOD TRANSFUSION, AUXILIARY PRODUCTS [Concomitant]
     Dosage: TWO UNITS OF PACKED CELLS

REACTIONS (4)
  - JOINT SWELLING [None]
  - VENOUS INSUFFICIENCY [None]
  - PHLEBITIS SUPERFICIAL [None]
  - DEEP VEIN THROMBOSIS [None]
